FAERS Safety Report 13223011 (Version 1)
Quarter: 2017Q1

REPORT INFORMATION
  Report Type: Other
  Country: US (occurrence: US)
  Receive Date: 20170212
  Receipt Date: 20170212
  Transmission Date: 20170428
  Serious: No
  Sender: FDA-Public Use
  Company Number: US-ACORDA-ACO_123633_2016

PATIENT
  Age: 66 Year
  Sex: Female
  Weight: 61.22 kg

DRUGS (6)
  1. WARFARIN [Concomitant]
     Active Substance: WARFARIN
     Indication: PRODUCT USED FOR UNKNOWN INDICATION
     Dosage: UNK
     Route: 065
  2. BACLOFEN. [Concomitant]
     Active Substance: BACLOFEN
     Indication: PRODUCT USED FOR UNKNOWN INDICATION
     Dosage: 20 MG, TID
     Route: 048
     Dates: start: 2005
  3. CYMBALTA [Concomitant]
     Active Substance: DULOXETINE HYDROCHLORIDE
     Indication: DYSPHORIA
     Dosage: UNK
     Dates: start: 2013
  4. AMPYRA [Suspect]
     Active Substance: DALFAMPRIDINE
     Indication: MULTIPLE SCLEROSIS
     Dosage: 10 MG, Q 12 HRS
     Route: 048
     Dates: start: 20160315, end: 20160421
  5. DULOXETINE. [Concomitant]
     Active Substance: DULOXETINE
     Indication: DYSPHORIA
     Dosage: 30 MG, QD
     Route: 048
     Dates: start: 2013
  6. TECFIDERA [Concomitant]
     Active Substance: DIMETHYL FUMARATE
     Indication: PRODUCT USED FOR UNKNOWN INDICATION
     Dosage: 240 MG, BID
     Route: 048
     Dates: start: 201601

REACTIONS (5)
  - Depression [Unknown]
  - Panic disorder [Recovered/Resolved]
  - Crying [Unknown]
  - Agitation [Recovered/Resolved]
  - Emotional disorder [Unknown]

NARRATIVE: CASE EVENT DATE: 20160413
